FAERS Safety Report 19107234 (Version 1)
Quarter: 2021Q2

REPORT INFORMATION
  Report Type: Spontaneous
  Country: US (occurrence: US)
  Receive Date: 20210408
  Receipt Date: 20210408
  Transmission Date: 20210717
  Serious: Yes (Hospitalization)
  Sender: FDA-Public Use
  Company Number: None

PATIENT
  Age: 69 Year
  Sex: Female
  Weight: 44 kg

DRUGS (2)
  1. ALIMTA [Suspect]
     Active Substance: PEMETREXED DISODIUM
     Dates: end: 20210317
  2. CARBOPLATIN 350MG [Suspect]
     Active Substance: CARBOPLATIN
     Dates: end: 20210317

REACTIONS (4)
  - Acute respiratory failure [None]
  - Pancytopenia [None]
  - Drug screen positive [None]
  - Pneumonia [None]

NARRATIVE: CASE EVENT DATE: 20210402
